FAERS Safety Report 21302217 (Version 1)
Quarter: 2022Q3

REPORT INFORMATION
  Report Type: Spontaneous
  Country: US (occurrence: None)
  Receive Date: 20220906
  Receipt Date: 20220906
  Transmission Date: 20221026
  Serious: No
  Sender: FDA-Public Use
  Company Number: None

PATIENT
  Age: 72 Year
  Sex: Female
  Weight: 56.25 kg

DRUGS (8)
  1. CRESTOR [Suspect]
     Active Substance: ROSUVASTATIN CALCIUM
     Indication: Low density lipoprotein increased
     Dosage: FREQUENCY : EVERY OTHER DAY;?
     Route: 048
     Dates: start: 20220301, end: 20220901
  2. VITAMINS [Concomitant]
     Active Substance: VITAMINS
  3. NIACIN [Concomitant]
     Active Substance: NIACIN
  4. COENZYME Q10 [Concomitant]
     Active Substance: DIETARY SUPPLEMENT\UBIDECARENONE
  5. FISH OIL [Concomitant]
     Active Substance: FISH OIL
  6. VITAMIN D NOS [Concomitant]
     Active Substance: VITAMIN D NOS
  7. VITAMIN K [Concomitant]
     Active Substance: PHYTONADIONE
  8. TRIPHALA [Concomitant]

REACTIONS (5)
  - Myalgia [None]
  - Arthralgia [None]
  - Pain in extremity [None]
  - Back pain [None]
  - Piriformis syndrome [None]

NARRATIVE: CASE EVENT DATE: 20220901
